FAERS Safety Report 24188927 (Version 1)
Quarter: 2024Q3

REPORT INFORMATION
  Report Type: Spontaneous
  Country: US (occurrence: US)
  Receive Date: 20240808
  Receipt Date: 20240808
  Transmission Date: 20241016
  Serious: No
  Sender: OTSUKA
  Company Number: US-OTSUKA-2024_013945

PATIENT
  Age: 60 Year
  Sex: Female

DRUGS (2)
  1. ARIPIPRAZOLE [Suspect]
     Active Substance: ARIPIPRAZOLE
     Indication: Product used for unknown indication
     Dosage: UNK
     Route: 065
  2. ABILIFY [Suspect]
     Active Substance: ARIPIPRAZOLE
     Indication: Schizoaffective disorder
     Dosage: 30 MG
     Route: 065
     Dates: start: 2018

REACTIONS (8)
  - Tachyphrenia [Unknown]
  - Procrastination [Unknown]
  - Paranoia [Unknown]
  - Thinking abnormal [Unknown]
  - Poor quality sleep [Unknown]
  - Anxiety [Unknown]
  - Product availability issue [Unknown]
  - Product use in unapproved indication [Unknown]
